FAERS Safety Report 14583507 (Version 1)
Quarter: 2018Q1

REPORT INFORMATION
  Report Type: Spontaneous
  Country: US (occurrence: US)
  Receive Date: 20180227
  Receipt Date: 20180227
  Transmission Date: 20180509
  Serious: Yes (Hospitalization)
  Sender: FDA-Public Use
  Company Number: None

PATIENT
  Age: 58 Year
  Sex: Male
  Weight: 77 kg

DRUGS (7)
  1. LIPITOR 10 MG DAILY [Concomitant]
  2. GLUCOPHAGE XR 1000MG BID [Concomitant]
  3. JANUVIA [Suspect]
     Active Substance: SITAGLIPTIN PHOSPHATE
     Indication: TYPE 2 DIABETES MELLITUS
     Route: 048
  4. CYMBALTA 30 MG DAILY [Concomitant]
  5. MACROBID 100MG BID [Concomitant]
  6. LANTUS INSULIN 15 UNIT MORNING AND 25 UNITS BEDTIME [Concomitant]
  7. LISINOPRIL 5 MG DAILY [Concomitant]

REACTIONS (2)
  - Pancreatitis acute [None]
  - Pancreatitis necrotising [None]

NARRATIVE: CASE EVENT DATE: 20180223
